FAERS Safety Report 5223617-3 (Version None)
Quarter: 2007Q1

REPORT INFORMATION
  Report Type: 
  Country: None (occurrence: None)
  Receive Date: 20070130
  Receipt Date: 20070119
  Transmission Date: 20070707
  Serious: Yes (Other)
  Sender: FDA-Public Use
  Company Number: US-JNJFOC-20070101685

PATIENT
  Age: 17 Year
  Sex: Male
  Weight: 72.58 kg

DRUGS (6)
  1. REMICADE [Suspect]
     Route: 042
  2. REMICADE [Suspect]
     Indication: CROHN'S DISEASE
     Route: 042
  3. COLAZOL [Concomitant]
     Indication: CROHN'S DISEASE
  4. MERCAPTOPURINE [Concomitant]
     Indication: CROHN'S DISEASE
  5. NEXIUM [Concomitant]
     Indication: CROHN'S DISEASE
  6. VITAMINS [Concomitant]
     Indication: ROUTINE HEALTH MAINTENANCE

REACTIONS (3)
  - DEMYELINATION [None]
  - GLIOMA [None]
  - HEADACHE [None]
